FAERS Safety Report 7133986-5 (Version None)
Quarter: 2010Q4

REPORT INFORMATION
  Report Type: 
  Country: None (occurrence: None)
  Receive Date: 20101203
  Receipt Date: 20101123
  Transmission Date: 20110411
  Serious: Yes (Other)
  Sender: FDA-Public Use
  Company Number: US-JNJFOC-20101200099

PATIENT
  Sex: Female

DRUGS (4)
  1. DOXORUBICIN HYDROCHLORIDE [Suspect]
     Indication: NEOPLASM MALIGNANT
     Dosage: DAY 1 OF EACH CYCLE
     Route: 042
  2. IXABEPILONE [Suspect]
     Indication: NEOPLASM MALIGNANT
     Route: 042
  3. DIPHENHYDRAMINE [Suspect]
     Indication: NEOPLASM MALIGNANT
     Dosage: 30 MINS PRIOR TO IXABEPILONE INFUSION
     Route: 042
  4. RANITIDINE [Suspect]
     Indication: NEOPLASM MALIGNANT
     Dosage: 30 MINS PRIOR TO IXABEPILONE INFUSION
     Route: 042

REACTIONS (2)
  - PULMONARY HAEMORRHAGE [None]
  - RESPIRATORY TRACT HAEMORRHAGE [None]
